FAERS Safety Report 13362539 (Version 1)
Quarter: 2017Q1

REPORT INFORMATION
  Report Type: Spontaneous
  Country: US (occurrence: US)
  Receive Date: 20170323
  Receipt Date: 20170323
  Transmission Date: 20170429
  Serious: No
  Sender: FDA-Public Use
  Company Number: US-PFIZER INC-2017120777

PATIENT
  Age: 53 Year
  Sex: Female

DRUGS (1)
  1. XELJANZ XR [Suspect]
     Active Substance: TOFACITINIB CITRATE
     Dosage: 11 MG, UNK

REACTIONS (7)
  - Myalgia [Unknown]
  - Initial insomnia [Unknown]
  - Fatigue [Unknown]
  - Musculoskeletal pain [Unknown]
  - Arthralgia [Unknown]
  - Antinuclear antibody positive [Unknown]
  - Skin discolouration [Unknown]
